FAERS Safety Report 22905257 (Version 4)
Quarter: 2025Q3

REPORT INFORMATION
  Report Type: Report from Study
  Country: CA (occurrence: CA)
  Receive Date: 20230905
  Receipt Date: 20250818
  Transmission Date: 20251021
  Serious: Yes (Other)
  Sender: JOHNSON AND JOHNSON
  Company Number: CA-JNJFOC-20220609732

PATIENT
  Age: 37 Year
  Sex: Female
  Weight: 65.77 kg

DRUGS (5)
  1. REMICADE [Suspect]
     Active Substance: INFLIXIMAB
     Indication: Crohn^s disease
     Route: 041
  2. REMICADE [Suspect]
     Active Substance: INFLIXIMAB
     Dosage: EXPIRY-01-AUG-2025
     Route: 041
     Dates: start: 20080128
  3. REMICADE [Suspect]
     Active Substance: INFLIXIMAB
     Dosage: EXPIRY: SE 2026
     Route: 041
     Dates: start: 20230824
  4. IMURAN [Suspect]
     Active Substance: AZATHIOPRINE
     Indication: Product used for unknown indication
     Route: 065
     Dates: end: 202204
  5. PROMETRIUM [Concomitant]
     Active Substance: PROGESTERONE
     Indication: Product used for unknown indication

REACTIONS (11)
  - Follicular lymphoma [Not Recovered/Not Resolved]
  - Poor venous access [Recovered/Resolved]
  - Tenderness [Recovered/Resolved]
  - Blood test abnormal [Recovered/Resolved]
  - Neutrophil count decreased [Unknown]
  - COVID-19 [Recovered/Resolved]
  - White blood cell count decreased [Unknown]
  - Arthropod bite [Unknown]
  - Stomatitis [Unknown]
  - Nasal ulcer [Unknown]
  - Off label use [Unknown]

NARRATIVE: CASE EVENT DATE: 20080128
